FAERS Safety Report 4765660-4 (Version None)
Quarter: 2005Q3

REPORT INFORMATION
  Report Type: 
  Country: None (occurrence: None)
  Receive Date: 20050912
  Receipt Date: 20050902
  Transmission Date: 20060218
  Serious: Yes (Other)
  Sender: FDA-Public Use
  Company Number: PHBS2005BR12981

PATIENT
  Age: 23 Year
  Sex: Female
  Weight: 65 kg

DRUGS (1)
  1. ZELMAC [Suspect]
     Indication: CONSTIPATION
     Dosage: 6 MG, BID
     Dates: start: 20050830

REACTIONS (3)
  - HAEMATOCHEZIA [None]
  - INFREQUENT BOWEL MOVEMENTS [None]
  - RECTAL HAEMORRHAGE [None]
